FAERS Safety Report 9090646 (Version 3)
Quarter: 2013Q1

REPORT INFORMATION
  Report Type: Spontaneous
  Country: US (occurrence: US)
  Receive Date: 20130131
  Receipt Date: 20130328
  Transmission Date: 20140127
  Serious: Yes (Hospitalization)
  Sender: FDA-Public Use
  Company Number: US-MYLANLABS-2013S1001316

PATIENT
  Age: 62 Year
  Sex: Female
  Weight: 68.04 kg

DRUGS (6)
  1. ZOLPIDEM TARTRATE [Suspect]
     Indication: INSOMNIA
     Route: 048
     Dates: start: 2012, end: 20130107
  2. CELEXA [Concomitant]
     Indication: BIPOLAR DISORDER
     Route: 048
     Dates: start: 2012
  3. LAMICTAL [Concomitant]
     Indication: BIPOLAR DISORDER
     Dosage: USING (4) 25MG TABS
     Route: 048
     Dates: start: 2012
  4. SYNTHROID [Concomitant]
     Indication: HYPOTHYROIDISM
  5. CALCIUM + VITAMIN D /01483701/ [Concomitant]
  6. GLUCOSAMINE CHONDROITIN SULFATE [Concomitant]

REACTIONS (5)
  - Drug effect increased [Recovered/Resolved]
  - Somnambulism [Recovered/Resolved]
  - Fall [Recovered/Resolved]
  - Loss of consciousness [Recovered/Resolved]
  - Facial bones fracture [Recovering/Resolving]
